FAERS Safety Report 5358513-4 (Version None)
Quarter: 2007Q2

REPORT INFORMATION
  Report Type: 
  Country: None (occurrence: None)
  Receive Date: 20070615
  Receipt Date: 20070605
  Transmission Date: 20071010
  Serious: Yes (Other)
  Sender: FDA-Public Use
  Company Number: BE-JNJFOC-20070601333

PATIENT
  Age: 57 Year
  Sex: Female

DRUGS (1)
  1. REMICADE [Suspect]
     Indication: PSORIATIC ARTHROPATHY
     Dosage: PATIENT RECEIVED 3 DOSES OF INFLIXIMAB.
     Route: 042

REACTIONS (2)
  - CARDIAC FAILURE [None]
  - MITRAL VALVE INCOMPETENCE [None]
